FAERS Safety Report 10701088 (Version 4)
Quarter: 2015Q2

REPORT INFORMATION
  Report Type: Report from Study
  Country: FR (occurrence: FR)
  Receive Date: 20150109
  Receipt Date: 20150623
  Transmission Date: 20150821
  Serious: Yes (Death, Hospitalization)
  Sender: FDA-Public Use
  Company Number: FR-BAYER-2015-000770

PATIENT
  Age: 64 Year
  Sex: Male
  Weight: 100 kg

DRUGS (7)
  1. AVLOCARDYL [Concomitant]
     Active Substance: PROPRANOLOL HYDROCHLORIDE
     Indication: PORTAL HYPERTENSION
     Dosage: TOTAL DAILY DOSE 160 MG
     Route: 048
     Dates: end: 20150107
  2. ALDACTONE [Concomitant]
     Active Substance: SPIRONOLACTONE
     Indication: ASCITES
     Dosage: TOTAL DAILY DOSE 50 MG
     Route: 048
     Dates: end: 20141228
  3. THERASPHERE [Suspect]
     Active Substance: YTTRIUM Y-90
     Indication: HEPATOCELLULAR CARCINOMA
     Dosage: TOTAL DOSE 147 MBQ
     Route: 013
     Dates: start: 20141118, end: 20141118
  4. OMEPRAZOLE. [Concomitant]
     Active Substance: OMEPRAZOLE
     Indication: GASTROOESOPHAGEAL REFLUX DISEASE
     Dosage: TOTAL DAILY DOSE 20 MG
     Route: 048
     Dates: end: 20141028
  5. LANTUS [Concomitant]
     Active Substance: INSULIN GLARGINE
     Indication: TYPE 2 DIABETES MELLITUS
     Dosage: DAILY DOSE 7 IU
     Route: 058
     Dates: end: 20150104
  6. SORAFENIB (RAF KINASE INHIBITOR) [Suspect]
     Active Substance: SORAFENIB
     Indication: HEPATOCELLULAR CARCINOMA
     Dosage: TOTAL DAILY DOSE 800 MG
     Route: 048
     Dates: start: 20141120, end: 20141229
  7. GADOXETIC ACID DISODIUM [Suspect]
     Active Substance: GADOXETATE DISODIUM
     Dosage: DAILY DOSE 10 ML
     Route: 042
     Dates: start: 20141014, end: 20141014

REACTIONS (10)
  - Hepatocellular carcinoma [Fatal]
  - Fatigue [Not Recovered/Not Resolved]
  - Confusional state [Not Recovered/Not Resolved]
  - Jaundice [Not Recovered/Not Resolved]
  - Hepatic encephalopathy [Not Recovered/Not Resolved]
  - Urinary tract infection bacterial [Not Recovered/Not Resolved]
  - Asthenia [Not Recovered/Not Resolved]
  - Decreased appetite [Not Recovered/Not Resolved]
  - Pruritus [Not Recovered/Not Resolved]
  - Rash [Not Recovered/Not Resolved]

NARRATIVE: CASE EVENT DATE: 20141229
